FAERS Safety Report 7737017-5 (Version None)
Quarter: 2011Q3

REPORT INFORMATION
  Report Type: 
  Country: None (occurrence: None)
  Receive Date: 20110908
  Receipt Date: 20110825
  Transmission Date: 20111222
  Serious: Yes (Hospitalization)
  Sender: FDA-Public Use
  Company Number: US-ELI_LILLY_AND_COMPANY-US201005000839

PATIENT
  Sex: Female
  Weight: 51.701 kg

DRUGS (13)
  1. FORTEO [Suspect]
     Dosage: 20 UG, DAILY (1/D)
     Route: 058
  2. PREDNISONE [Concomitant]
     Dosage: UNK, UNKNOWN
     Route: 065
  3. CLONIDINE [Concomitant]
     Dosage: UNK, UNKNOWN
     Route: 065
  4. CALCIUM+VIT D /00944201/ [Concomitant]
  5. LOTREL [Concomitant]
  6. FORTEO [Suspect]
     Dosage: 20 UG, DAILY (1/D)
     Route: 058
  7. AVELOX [Concomitant]
     Dosage: UNK, UNKNOWN
     Route: 065
  8. FLOVENT [Concomitant]
  9. HYDROCHLOROTHIAZIDE [Concomitant]
  10. FORTEO [Suspect]
     Indication: OSTEOPOROSIS
     Dosage: 20 UG, DAILY (1/D)
     Route: 058
     Dates: start: 20091023
  11. FORTEO [Suspect]
     Dosage: 20 UG, QD
     Route: 058
  12. LOTRIL                             /00574902/ [Concomitant]
     Dosage: UNK, UNKNOWN
     Route: 065
  13. COMBIVENT [Concomitant]

REACTIONS (5)
  - RETCHING [None]
  - NAUSEA [None]
  - MUSCLE SPASMS [None]
  - EMPHYSEMA [None]
  - CALCIUM METABOLISM DISORDER [None]
